FAERS Safety Report 6955728-6 (Version None)
Quarter: 2010Q3

REPORT INFORMATION
  Report Type: 
  Country: None (occurrence: None)
  Receive Date: 20100830
  Receipt Date: 20100716
  Transmission Date: 20110219
  Serious: No
  Sender: FDA-Public Use
  Company Number: US-AMGEN-KDL425115

PATIENT
  Sex: Male
  Weight: 81.3 kg

DRUGS (8)
  1. NPLATE [Suspect]
     Indication: IDIOPATHIC THROMBOCYTOPENIC PURPURA
     Dates: start: 20100518
  2. NEXIUM [Concomitant]
  3. AMBIEN [Concomitant]
  4. PREDNISONE [Concomitant]
  5. CRESTOR [Concomitant]
  6. PAXIL [Concomitant]
  7. ATIVAN [Concomitant]
  8. FISH OIL [Concomitant]

REACTIONS (2)
  - MUSCULOSKELETAL DISCOMFORT [None]
  - RESPIRATORY TRACT CONGESTION [None]
